FAERS Safety Report 9422041 (Version 2)
Quarter: 2013Q3

REPORT INFORMATION
  Report Type: Spontaneous
  Country: BR (occurrence: BR)
  Receive Date: 20130726
  Receipt Date: 20130808
  Transmission Date: 20140515
  Serious: Yes (Death, Hospitalization, Other)
  Sender: FDA-Public Use
  Company Number: BR-JNJFOC-20130712067

PATIENT
  Age: 84 Year
  Sex: Female

DRUGS (3)
  1. XARELTO [Suspect]
     Indication: EMBOLIC STROKE
     Route: 048
  2. XARELTO [Suspect]
     Indication: ISCHAEMIC STROKE
     Route: 048
  3. ENOXAPARIN [Concomitant]
     Route: 065

REACTIONS (3)
  - Pneumonia [Fatal]
  - Haematoma [Unknown]
  - International normalised ratio increased [Unknown]
